FAERS Safety Report 7017369-4 (Version None)
Quarter: 2010Q3

REPORT INFORMATION
  Report Type: 
  Country: None (occurrence: None)
  Receive Date: 20100928
  Receipt Date: 20100917
  Transmission Date: 20110219
  Serious: No
  Sender: FDA-Public Use
  Company Number: 2010BI005021

PATIENT
  Sex: Male

DRUGS (1)
  1. TYSABRI [Suspect]
     Indication: MULTIPLE SCLEROSIS
     Route: 042
     Dates: start: 20071205

REACTIONS (6)
  - MENTAL IMPAIRMENT [None]
  - MUSCLE SPASMS [None]
  - NOCTURIA [None]
  - PROSTATOMEGALY [None]
  - TREMOR [None]
  - URINARY TRACT INFECTION [None]
